FAERS Safety Report 7381308-7 (Version None)
Quarter: 2011Q1

REPORT INFORMATION
  Report Type: 
  Country: None (occurrence: None)
  Receive Date: 20110329
  Receipt Date: 20110321
  Transmission Date: 20110831
  Serious: Yes (Death)
  Sender: FDA-Public Use
  Company Number: PHHY2011CH22180

PATIENT
  Sex: Female
  Weight: 64 kg

DRUGS (8)
  1. SYMBICORT [Concomitant]
     Indication: CHRONIC OBSTRUCTIVE PULMONARY DISEASE
  2. SERETIDE [Concomitant]
     Indication: CHRONIC OBSTRUCTIVE PULMONARY DISEASE
  3. AERIUS [Concomitant]
     Dosage: UNK
     Dates: end: 20110220
  4. ONBREZ [Suspect]
     Indication: CHRONIC OBSTRUCTIVE PULMONARY DISEASE
     Dosage: 150 UG, DAILY
  5. ONBREZ [Suspect]
     Dosage: 150 UG, DAILY
     Dates: start: 20101024, end: 20110220
  6. TYSABRI [Concomitant]
     Dosage: 300 MG, DAILY
     Dates: start: 20091102, end: 20110220
  7. RASILEZ [Suspect]
     Dosage: 150 MG, DAILY
     Dates: start: 20100101, end: 20110220
  8. LYRICA [Concomitant]
     Dosage: 50 MG, DAILY
     Dates: start: 20100101, end: 20110220

REACTIONS (1)
  - ASTHMATIC CRISIS [None]
